FAERS Safety Report 22074132 (Version 1)
Quarter: 2023Q1

REPORT INFORMATION
  Report Type: Spontaneous
  Country: FR (occurrence: FR)
  Receive Date: 20230308
  Receipt Date: 20230308
  Transmission Date: 20230417
  Serious: Yes (Hospitalization)
  Sender: FDA-Public Use
  Company Number: None

PATIENT
  Age: 18 Year
  Sex: Female
  Weight: 75 kg

DRUGS (2)
  1. ACETAMINOPHEN [Suspect]
     Active Substance: ACETAMINOPHEN
     Indication: Headache
     Dosage: UNK
     Route: 048
     Dates: start: 202302, end: 202302
  2. DESOGESTREL [Suspect]
     Active Substance: DESOGESTREL
     Indication: Contraception
     Dosage: 1 DOSAGE FORM, QD
     Route: 048
     Dates: start: 202301, end: 20230208

REACTIONS (1)
  - Autoimmune haemolytic anaemia [Not Recovered/Not Resolved]

NARRATIVE: CASE EVENT DATE: 20230208
